FAERS Safety Report 6199627-9 (Version None)
Quarter: 2009Q2

REPORT INFORMATION
  Report Type: 
  Country: None (occurrence: None)
  Receive Date: 20090522
  Receipt Date: 20081024
  Transmission Date: 20091009
  Serious: No
  Sender: FDA-Public Use
  Company Number: A0753672A

PATIENT
  Age: 84 Year
  Sex: Female

DRUGS (2)
  1. BACTROBAN [Suspect]
     Dosage: 1APP TWICE PER DAY
     Route: 045
     Dates: start: 20080918, end: 20080922
  2. NO CONCURRENT MEDICATION [Concomitant]

REACTIONS (4)
  - DYSPHONIA [None]
  - NOSE DEFORMITY [None]
  - OROPHARYNGEAL PAIN [None]
  - SINUSITIS [None]
